FAERS Safety Report 20529838 (Version 2)
Quarter: 2022Q1

REPORT INFORMATION
  Report Type: Spontaneous
  Country: US (occurrence: US)
  Receive Date: 20220301
  Receipt Date: 20220317
  Transmission Date: 20220423
  Serious: Yes (Hospitalization, Other)
  Sender: FDA-Public Use
  Company Number: US-JNJFOC-20220300117

PATIENT
  Sex: Male
  Weight: 73 kg

DRUGS (22)
  1. XARELTO [Suspect]
     Active Substance: RIVAROXABAN
     Indication: Atrial fibrillation
     Route: 048
  2. XARELTO [Suspect]
     Active Substance: RIVAROXABAN
     Indication: Cerebrovascular accident prophylaxis
  3. METOPROLOL TARTRATE [Concomitant]
     Active Substance: METOPROLOL TARTRATE
  4. DIGOXIN [Concomitant]
     Active Substance: DIGOXIN
  5. CHOLECALCIFEROL [Concomitant]
     Active Substance: CHOLECALCIFEROL
  6. FAMOTIDINE [Concomitant]
     Active Substance: FAMOTIDINE
  7. TAMSULOSIN [Concomitant]
     Active Substance: TAMSULOSIN
  8. ASPIRIN [Concomitant]
     Active Substance: ASPIRIN
  9. ASCORBIC ACID [Concomitant]
     Active Substance: ASCORBIC ACID
  10. GUAIFENESIN [Concomitant]
     Active Substance: GUAIFENESIN
     Dates: start: 20220116, end: 20220120
  11. METHYLPREDNISOLONE [Concomitant]
     Active Substance: METHYLPREDNISOLONE
     Dates: start: 20220116, end: 20220119
  12. MIDODRINE [Concomitant]
     Active Substance: MIDODRINE
     Dates: start: 20220116
  13. PANTOPRAZOLE [Concomitant]
     Active Substance: PANTOPRAZOLE
     Dates: start: 20220116, end: 20220119
  14. ZOSYN [Concomitant]
     Active Substance: PIPERACILLIN SODIUM\TAZOBACTAM SODIUM
     Dates: start: 20220116, end: 20220118
  15. PREDNISONE [Concomitant]
     Active Substance: PREDNISONE
     Dates: start: 20220119
  16. DOPAMINE [Concomitant]
     Active Substance: DOPAMINE HYDROCHLORIDE
     Dates: start: 20220116, end: 20220117
  17. ALBUTEROL [Concomitant]
     Active Substance: ALBUTEROL
     Dates: start: 20220116, end: 20220120
  18. ALLOPURINOL [Concomitant]
     Active Substance: ALLOPURINOL
  19. AMIODARONE [Concomitant]
     Active Substance: AMIODARONE
  20. GABAPENTIN [Concomitant]
     Active Substance: GABAPENTIN
  21. FOLIC ACID [Concomitant]
     Active Substance: FOLIC ACID
  22. FUROSEMIDE [Concomitant]
     Active Substance: FUROSEMIDE

REACTIONS (7)
  - Cardiac failure acute [Recovered/Resolved]
  - Wound haemorrhage [Recovered/Resolved]
  - Acute respiratory failure [Recovered/Resolved]
  - Fall [Recovered/Resolved]
  - COVID-19 [Recovered/Resolved]
  - Treatment noncompliance [Unknown]
  - Aspartate aminotransferase increased [Unknown]

NARRATIVE: CASE EVENT DATE: 20220116
